FAERS Safety Report 21111498 (Version 4)
Quarter: 2023Q1

REPORT INFORMATION
  Report Type: Spontaneous
  Country: CA (occurrence: CA)
  Receive Date: 20220721
  Receipt Date: 20230329
  Transmission Date: 20230417
  Serious: Yes (Other)
  Sender: FDA-Public Use
  Company Number: CA-PFIZER INC-202200916800

PATIENT
  Age: 9 Year
  Sex: Female

DRUGS (2)
  1. GENOTROPIN [Suspect]
     Active Substance: SOMATROPIN
     Indication: Small for dates baby
     Dosage: 1400 UG (1.4 MG/DAY 6 DAYS/WEEK)
     Route: 058
     Dates: start: 20220519, end: 202206
  2. GENOTROPIN [Suspect]
     Active Substance: SOMATROPIN
     Dosage: 1400 UG, 6 DAYS/WEEK
     Route: 058
     Dates: start: 2022

REACTIONS (6)
  - Headache [Recovered/Resolved]
  - Vomiting [Recovered/Resolved]
  - Lethargy [Recovered/Resolved]
  - Fatigue [Unknown]
  - Malaise [Recovered/Resolved]
  - Pain in extremity [Unknown]

NARRATIVE: CASE EVENT DATE: 20220101
